FAERS Safety Report 24646822 (Version 1)
Quarter: 2024Q4

REPORT INFORMATION
  Report Type: Spontaneous
  Country: US (occurrence: US)
  Receive Date: 20241121
  Receipt Date: 20241121
  Transmission Date: 20250115
  Serious: No
  Sender: MISSION PHARMACAL COMPANY
  Company Number: US-Mission Pharmacal Company-2165519

PATIENT
  Age: 64 Year
  Sex: Male

DRUGS (1)
  1. THIOLA EC [Suspect]
     Active Substance: TIOPRONIN
     Indication: Cystinuria
     Dates: start: 20150915

REACTIONS (4)
  - Ecchymosis [Unknown]
  - Drug ineffective [Unknown]
  - Skin texture abnormal [Unknown]
  - Gastrooesophageal reflux disease [Unknown]
